FAERS Safety Report 4306192-7 (Version None)
Quarter: 2004Q1

REPORT INFORMATION
  Report Type: 
  Country: None (occurrence: None)
  Receive Date: 20040225
  Receipt Date: 20030306
  Transmission Date: 20041129
  Serious: No
  Sender: FDA-Public Use
  Company Number: US-BRISTOL-MYERS SQUIBB COMPANY-12215950

PATIENT
  Age: 58 Year
  Sex: Female
  Weight: 77 kg

DRUGS (3)
  1. EXCEDRIN ES TABS [Suspect]
     Indication: MIGRAINE
     Dosage: 2 TABLETS DAILY - UP TO 8 TABLETS PER DAY.
  2. EXCEDRIN ES TABS [Suspect]
     Indication: ARTHRITIS
     Dosage: 2 TABLETS DAILY - UP TO 8 TABLETS PER DAY.
  3. EXCEDRIN ES TABS [Suspect]
     Indication: TENDONITIS
     Dosage: 2 TABLETS DAILY - UP TO 8 TABLETS PER DAY.

REACTIONS (2)
  - HYPOAESTHESIA [None]
  - HYPOAESTHESIA ORAL [None]
